FAERS Safety Report 8992843 (Version 2)
Quarter: 2013Q1

REPORT INFORMATION
  Report Type: Spontaneous
  Country: US (occurrence: US)
  Receive Date: 20130102
  Receipt Date: 20130118
  Transmission Date: 20140127
  Serious: No
  Sender: FDA-Public Use
  Company Number: US-009507513-1212USA006236

PATIENT
  Age: 20 Year
  Sex: Female
  Weight: 108.84 kg

DRUGS (1)
  1. IMPLANON [Suspect]
     Indication: CONTRACEPTION
     Dosage: 1 DF, UNK
     Route: 059
     Dates: start: 20120514

REACTIONS (2)
  - Medical device complication [Unknown]
  - No adverse event [Unknown]
